FAERS Safety Report 10530761 (Version 1)
Quarter: 2014Q4

REPORT INFORMATION
  Report Type: Spontaneous
  Country: US (occurrence: None)
  Receive Date: 20141020
  Receipt Date: 20141020
  Transmission Date: 20150528
  Serious: No
  Sender: FDA-Public Use
  Company Number: None

PATIENT
  Age: 57 Year
  Sex: Female
  Weight: 80.29 kg

DRUGS (1)
  1. BELVIQ [Suspect]
     Active Substance: LORCASERIN HYDROCHLORIDE
     Indication: WEIGHT DECREASED
     Route: 048
     Dates: start: 20140925, end: 20141009

REACTIONS (4)
  - Dyspnoea [None]
  - Muscular weakness [None]
  - Oedema peripheral [None]
  - Balance disorder [None]

NARRATIVE: CASE EVENT DATE: 20140925
